FAERS Safety Report 6650083-3 (Version None)
Quarter: 2010Q1

REPORT INFORMATION
  Report Type: 
  Country: None (occurrence: None)
  Receive Date: 20100325
  Receipt Date: 20090223
  Transmission Date: 20100710
  Serious: No
  Sender: FDA-Public Use
  Company Number: US-KINGPHARMUSA00001-K200900193

PATIENT
  Age: 69 Year
  Sex: Male

DRUGS (9)
  1. ALTACE [Suspect]
     Dosage: UNK
  2. UROXATRAL [Suspect]
     Indication: PROSTATIC DISORDER
     Dosage: 10 MG, QD
     Route: 048
     Dates: start: 20090101
  3. UROXATRAL [Suspect]
     Indication: NOCTURIA
  4. CALAN [Suspect]
     Dosage: UNK
  5. ACTIGALL [Suspect]
     Dosage: UNK
  6. SYNTHROID [Suspect]
     Dosage: UNK
  7. INDAPAMIDE [Suspect]
     Dosage: UNK
  8. HYTRIN [Suspect]
     Dosage: UNK
  9. DEPO-TESTOSTERONE [Suspect]
     Dosage: UNK

REACTIONS (9)
  - DIZZINESS [None]
  - DRUG INTERACTION [None]
  - FATIGUE [None]
  - HEADACHE [None]
  - HYPOTENSION [None]
  - PAIN IN EXTREMITY [None]
  - TENDON DISORDER [None]
  - TENDON PAIN [None]
  - TRIGGER FINGER [None]
